FAERS Safety Report 5142555-8 (Version None)
Quarter: 2006Q4

REPORT INFORMATION
  Report Type: 
  Country: None (occurrence: None)
  Receive Date: 20061031
  Receipt Date: 20061031
  Transmission Date: 20070319
  Serious: Yes (Hospitalization)
  Sender: FDA-Public Use
  Company Number: None

PATIENT
  Sex: Female
  Weight: 88.45 kg

DRUGS (2)
  1. FLUOROURACIL [Suspect]
     Dosage: 4400 MG   (425MG/M2/DAY ON DAYS 1 THROUGH 5)
  2. LEUCOVORIN CALCIUM [Suspect]
     Dosage: 200 MG (20MG/M2/DAY ON DAYS 1 THROUGH 5)

REACTIONS (13)
  - BLOOD CULTURE POSITIVE [None]
  - DEEP VEIN THROMBOSIS [None]
  - DYSPNOEA [None]
  - HYPOTENSION [None]
  - ILEUS [None]
  - METABOLIC ACIDOSIS [None]
  - METASTASES TO ADRENALS [None]
  - PERITONITIS [None]
  - PNEUMONIA KLEBSIELLA [None]
  - RENAL FAILURE [None]
  - SEPSIS [None]
  - STOMATITIS [None]
  - SUPRAVENTRICULAR TACHYCARDIA [None]
